FAERS Safety Report 6412252-7 (Version None)
Quarter: 2009Q4

REPORT INFORMATION
  Report Type: 
  Country: None (occurrence: None)
  Receive Date: 20091023
  Receipt Date: 20091013
  Transmission Date: 20100525
  Serious: Yes (Other)
  Sender: FDA-Public Use
  Company Number: US-PFIZER INC-2006152217

PATIENT
  Sex: Female

DRUGS (11)
  1. DEPO-PROVERA [Suspect]
     Indication: CONTRACEPTION
     Dosage: UNK
     Route: 030
     Dates: start: 19950723, end: 20060101
  2. PENICILLIN G [Concomitant]
     Indication: PHARYNGITIS STREPTOCOCCAL
  3. ERYTHROMYCIN [Concomitant]
     Indication: TONSILLITIS
  4. CEFZIL [Concomitant]
     Indication: LYMPHADENITIS
  5. BACTRIM DS [Concomitant]
     Indication: SINUSITIS
  6. WESTCORT [Concomitant]
     Indication: DERMATITIS CONTACT
  7. ALLEGRA [Concomitant]
     Indication: HYPERSENSITIVITY
  8. FLOXIN OTIC [Concomitant]
     Indication: OTITIS MEDIA
  9. MOTRIN [Concomitant]
  10. ADVIL [Concomitant]
  11. ACETAMINOPHEN [Concomitant]

REACTIONS (2)
  - BODY HEIGHT DECREASED [None]
  - OSTEOPOROSIS [None]
